FAERS Safety Report 6047345-X (Version None)
Quarter: 2009Q1

REPORT INFORMATION
  Report Type: 
  Country: None (occurrence: None)
  Receive Date: 20090122
  Receipt Date: 20090115
  Transmission Date: 20090719
  Serious: Yes (Hospitalization)
  Sender: FDA-Public Use
  Company Number: DE-GENENTECH-273239

PATIENT
  Sex: Female

DRUGS (2)
  1. MABTHERA [Suspect]
     Indication: NON-HODGKIN'S LYMPHOMA
     Dosage: 700 MG, UNK
     Route: 042
     Dates: start: 20081202
  2. PRE-MEDICATIONS (UNK INGREDIENTS) [Concomitant]
     Indication: PREMEDICATION

REACTIONS (3)
  - CHILLS [None]
  - MUSCLE SPASMS [None]
  - PYREXIA [None]
